FAERS Safety Report 6460269-9 (Version None)
Quarter: 2009Q4

REPORT INFORMATION
  Report Type: 
  Country: None (occurrence: None)
  Receive Date: 20091130
  Receipt Date: 20091116
  Transmission Date: 20100525
  Serious: Yes (Other)
  Sender: FDA-Public Use
  Company Number: PHHY2009BR50365

PATIENT
  Sex: Female
  Weight: 78 kg

DRUGS (1)
  1. DIOVAN TRIPLE [Suspect]
     Indication: HYPERTENSION
     Dosage: 160//5/12.5 MG, 1 COMBINED DAILY
     Route: 048

REACTIONS (6)
  - BALANCE DISORDER [None]
  - BLOOD PRESSURE INCREASED [None]
  - DIZZINESS [None]
  - PRESYNCOPE [None]
  - TREATMENT NONCOMPLIANCE [None]
  - VOMITING [None]
